FAERS Safety Report 10593033 (Version 1)
Quarter: 2014Q4

REPORT INFORMATION
  Report Type: Spontaneous
  Country: US (occurrence: US)
  Receive Date: 20141119
  Receipt Date: 20141119
  Transmission Date: 20150529
  Serious: Yes (Other)
  Sender: FDA-Public Use
  Company Number: US-JNJFOC-20141110350

PATIENT
  Age: 31 Year
  Sex: Female
  Weight: 90.72 kg

DRUGS (2)
  1. REMICADE [Suspect]
     Active Substance: INFLIXIMAB
     Indication: CROHN^S DISEASE
     Route: 042
     Dates: start: 20130915, end: 201310
  2. REMICADE [Suspect]
     Active Substance: INFLIXIMAB
     Indication: CROHN^S DISEASE
     Route: 042

REACTIONS (3)
  - Lupus-like syndrome [Recovered/Resolved]
  - Alopecia [Recovering/Resolving]
  - Weight increased [Recovering/Resolving]

NARRATIVE: CASE EVENT DATE: 201309
